FAERS Safety Report 10009486 (Version 2)
Quarter: 2014Q1

REPORT INFORMATION
  Report Type: Spontaneous
  Country: US (occurrence: US)
  Receive Date: 20140312
  Receipt Date: 20140312
  Transmission Date: 20141002
  Serious: No
  Sender: FDA-Public Use
  Company Number: US-INCYTE CORPORATION-2012IN001440

PATIENT
  Age: 79 Year
  Sex: Female
  Weight: 36.28 kg

DRUGS (8)
  1. JAKAFI [Suspect]
     Indication: MYELOFIBROSIS
     Dosage: 10 MG, Q12H
     Route: 048
     Dates: start: 20120305, end: 201203
  2. JAKAFI [Suspect]
     Dosage: 10 MG, Q12H
     Route: 048
     Dates: start: 20120423
  3. SINEMET [Suspect]
     Indication: PARKINSON^S DISEASE
     Dosage: 25/100 MG (1/2 TAB), TID
     Route: 048
     Dates: start: 2012
  4. ASCORBIC ACID [Concomitant]
     Dosage: 500 MG, BID
     Route: 048
  5. ASPIRIN (E.C.) [Concomitant]
     Dosage: 81 MG, QD
     Route: 048
  6. OSCAL 500-D [Concomitant]
     Dosage: 500/125 MG UNIT
     Route: 048
  7. ZYRTEC [Concomitant]
     Route: 048
  8. HORSE CHESTNUT EXTRACT [Concomitant]
     Dosage: 500 MG, QD
     Route: 048

REACTIONS (2)
  - Rash [Unknown]
  - Dizziness [Recovered/Resolved]
